FAERS Safety Report 6560079-8 (Version None)
Quarter: 2010Q1

REPORT INFORMATION
  Report Type: 
  Country: None (occurrence: None)
  Receive Date: 20100129
  Receipt Date: 20090917
  Transmission Date: 20100710
  Serious: No
  Sender: FDA-Public Use
  Company Number: US-ABBOTT-09P-163-0598258-00

PATIENT
  Sex: Male
  Weight: 77.18 kg

DRUGS (6)
  1. HUMIRA [Suspect]
     Indication: RHEUMATOID ARTHRITIS
     Route: 058
     Dates: start: 20090722
  2. METHOTREXATE [Concomitant]
     Indication: DRUG USE FOR UNKNOWN INDICATION
     Dosage: WEEKLY INJ
  3. PREDNISONE [Concomitant]
     Indication: DRUG USE FOR UNKNOWN INDICATION
     Dosage: 5-10 MG AS NEEDED IN THE MORNING
  4. NAPROSYN [Concomitant]
     Indication: DRUG USE FOR UNKNOWN INDICATION
  5. SKELAXIN [Concomitant]
     Indication: DRUG USE FOR UNKNOWN INDICATION
  6. ZOLPIDEM [Concomitant]
     Indication: INSOMNIA

REACTIONS (2)
  - DRUG DOSE OMISSION [None]
  - INJECTION SITE PAIN [None]
